FAERS Safety Report 5675912-1 (Version None)
Quarter: 2008Q1

REPORT INFORMATION
  Report Type: 
  Country: None (occurrence: None)
  Receive Date: 20080321
  Receipt Date: 20080318
  Transmission Date: 20080703
  Serious: Yes (Other)
  Sender: FDA-Public Use
  Company Number: B0511421A

PATIENT
  Age: 7 Year
  Sex: Male

DRUGS (3)
  1. RELENZA [Suspect]
     Indication: INFLUENZA
     Dosage: 10MG PER DAY
     Route: 055
     Dates: start: 20080228, end: 20080228
  2. NAUZELIN [Concomitant]
     Route: 048
     Dates: start: 20080228, end: 20080302
  3. CALONAL [Concomitant]
     Route: 048
     Dates: start: 20080228

REACTIONS (2)
  - ABNORMAL BEHAVIOUR [None]
  - AGITATION [None]
